FAERS Safety Report 9554609 (Version 1)
Quarter: 2013Q3

REPORT INFORMATION
  Report Type: Spontaneous
  Country: US (occurrence: US)
  Receive Date: 20130925
  Receipt Date: 20130925
  Transmission Date: 20140515
  Serious: Yes (Other)
  Sender: FDA-Public Use
  Company Number: US-BAXTER-2013BAX037008

PATIENT
  Age: 54 Year
  Sex: Male

DRUGS (6)
  1. VANCOMYCIN INJECTION, USP [Suspect]
     Indication: ANTIBIOTIC PROPHYLAXIS
     Route: 065
  2. MIDAZOLAM [Suspect]
     Indication: ANAESTHESIA PROCEDURE
     Route: 065
  3. LIDOCAINE [Suspect]
     Indication: ANAESTHESIA PROCEDURE
     Route: 065
  4. FENTANYL [Suspect]
     Indication: ANAESTHESIA PROCEDURE
     Route: 065
  5. PROPOFOL [Suspect]
     Indication: ANAESTHESIA PROCEDURE
     Route: 065
  6. VECURONIUM [Suspect]
     Indication: ANAESTHESIA PROCEDURE
     Route: 065

REACTIONS (1)
  - Anaphylactic reaction [Recovered/Resolved]
